FAERS Safety Report 25101638 (Version 5)
Quarter: 2025Q2

REPORT INFORMATION
  Report Type: Spontaneous
  Country: CO (occurrence: CO)
  Receive Date: 20250320
  Receipt Date: 20250514
  Transmission Date: 20250716
  Serious: No
  Sender: PFIZER
  Company Number: CO-PFIZER INC-PV202500032276

PATIENT
  Age: 9 Year
  Sex: Female
  Weight: 15 kg

DRUGS (4)
  1. GENOTROPIN [Suspect]
     Active Substance: SOMATROPIN
     Indication: Short stature
     Dosage: 0.4 MG, DAILY
     Route: 058
     Dates: start: 202407, end: 202410
  2. LEVETIRACETAM [Concomitant]
     Active Substance: LEVETIRACETAM
     Indication: Seizure
     Dosage: 3 ML, 3X/DAY (EVERY 8 HOURS)
  3. OXCARBAZEPINE [Concomitant]
     Active Substance: OXCARBAZEPINE
     Indication: Seizure
     Dosage: 4 ML, 2X/DAY (EVERY 12 HOURS)
  4. CLOBAZAM [Concomitant]
     Active Substance: CLOBAZAM
     Indication: Seizure
     Dosage: UNK, 1X/DAY

REACTIONS (5)
  - Device information output issue [Not Recovered/Not Resolved]
  - Device use issue [Not Recovered/Not Resolved]
  - Product communication issue [Not Recovered/Not Resolved]
  - Drug dose omission by device [Not Recovered/Not Resolved]
  - Product label issue [Unknown]

NARRATIVE: CASE EVENT DATE: 20250101
